FAERS Safety Report 21491582 (Version 1)
Quarter: 2022Q4

REPORT INFORMATION
  Report Type: Other
  Country: DE (occurrence: DE)
  Receive Date: 20221021
  Receipt Date: 20221021
  Transmission Date: 20230113
  Serious: Yes (Death, Hospitalization, Other)
  Sender: FDA-Public Use
  Company Number: DE-CELLTRION INC.-2022DE016548

PATIENT

DRUGS (2)
  1. RITUXIMAB [Suspect]
     Active Substance: RITUXIMAB
     Indication: Product used for unknown indication
     Dosage: 500 MG
  2. ASPIRIN [Concomitant]
     Active Substance: ASPIRIN
     Dosage: NK
     Route: 065

REACTIONS (4)
  - Death [Fatal]
  - Fall [Unknown]
  - Cardiac arrest [Unknown]
  - Acute myocardial infarction [Unknown]
